FAERS Safety Report 22090234 (Version 1)
Quarter: 2023Q1

REPORT INFORMATION
  Report Type: Spontaneous
  Country: US (occurrence: None)
  Receive Date: 20230311
  Receipt Date: 20230311
  Transmission Date: 20230418
  Serious: No
  Sender: FDA-Public Use
  Company Number: None

PATIENT

DRUGS (2)
  1. DYNA-HEX [Suspect]
     Active Substance: CHLORHEXIDINE GLUCONATE
  2. CHLORHEXIDINE [Suspect]
     Active Substance: CHLORHEXIDINE

REACTIONS (3)
  - Pruritus [None]
  - Post procedural complication [None]
  - Application site rash [None]

NARRATIVE: CASE EVENT DATE: 20230308
